FAERS Safety Report 9484419 (Version 1)
Quarter: 2013Q3

REPORT INFORMATION
  Report Type: Spontaneous
  Country: CA (occurrence: CA)
  Receive Date: 20130828
  Receipt Date: 20130828
  Transmission Date: 20140515
  Serious: Yes (Other)
  Sender: FDA-Public Use
  Company Number: CA-AMGEN-KDL420789

PATIENT
  Sex: Female
  Weight: 86.3 kg

DRUGS (8)
  1. ENBREL [Suspect]
     Indication: RHEUMATOID ARTHRITIS
     Dosage: UNK UNK, QWK
     Route: 065
     Dates: start: 20100323, end: 20100426
  2. METHOTREXATE [Concomitant]
  3. DICLOFENAC SODIUM/ MISOPROSTOL [Concomitant]
  4. CALCIUM [Concomitant]
  5. MAGNESIUM [Concomitant]
  6. LOSARTAN POTASSIUM [Concomitant]
  7. AMLODIPINE BESILATE [Concomitant]
  8. CALCITRIOL [Concomitant]
     Dosage: UNK UNK, UNK
     Dates: end: 201004

REACTIONS (1)
  - Hypoaesthesia [Unknown]
